FAERS Safety Report 5053438-6 (Version None)
Quarter: 2006Q3

REPORT INFORMATION
  Report Type: 
  Country: None (occurrence: None)
  Receive Date: 20060712
  Receipt Date: 20060628
  Transmission Date: 20061208
  Serious: Yes (Hospitalization)
  Sender: FDA-Public Use
  Company Number: 14330

PATIENT
  Age: 33 Year
  Sex: Female

DRUGS (15)
  1. METHOTREXATE [Suspect]
     Indication: RHEUMATOID ARTHRITIS
     Dosage: 25 MG WEEKLY INJ
     Dates: start: 20050401, end: 20060201
  2. AKTIFERRIN [Concomitant]
  3. CYCLACOR [Concomitant]
  4. DICLOFENAC [Concomitant]
  5. FOLIC ACID [Concomitant]
  6. FOSAMAX [Concomitant]
  7. KEPPRA [Concomitant]
  8. MEXALEN [Concomitant]
  9. PREDNISOLONE [Concomitant]
  10. CARBAMAZEPINE [Concomitant]
  11. LEVOTHYROXINE SODIUM [Concomitant]
  12. TRAMADOLOR [Concomitant]
  13. COLECALCIFEROL [Concomitant]
  14. PANTOPRAZOLE SODIUM [Concomitant]
  15. SULFASALAZINE [Concomitant]

REACTIONS (2)
  - IMMUNODEFICIENCY [None]
  - LYMPHOPENIA [None]
